FAERS Safety Report 8030396-3 (Version None)
Quarter: 2012Q1

REPORT INFORMATION
  Report Type: 
  Country: None (occurrence: None)
  Receive Date: 20120109
  Receipt Date: 20120109
  Transmission Date: 20120608
  Serious: No
  Sender: FDA-Public Use
  Company Number: None

PATIENT
  Age: 58 Year
  Sex: Male
  Weight: 88.45 kg

DRUGS (2)
  1. LEVAQUIN [Concomitant]
     Indication: PROSTATE INFECTION
  2. CIPROFLOXACIN [Suspect]
     Indication: SINUSITIS
     Dosage: STANDARD
     Route: 048
     Dates: start: 20061126, end: 20061205

REACTIONS (6)
  - CARDIAC FIBRILLATION [None]
  - PARAESTHESIA [None]
  - NEUROPATHY PERIPHERAL [None]
  - MENIERE'S DISEASE [None]
  - SENSORY DISTURBANCE [None]
  - SUDDEN HEARING LOSS [None]
